FAERS Safety Report 19482897 (Version 1)
Quarter: 2021Q3

REPORT INFORMATION
  Report Type: Spontaneous
  Country: BR (occurrence: BR)
  Receive Date: 20210701
  Receipt Date: 20210701
  Transmission Date: 20211014
  Serious: Yes (Hospitalization, Other)
  Sender: FDA-Public Use
  Company Number: BR-NOVOPROD-823780

PATIENT
  Age: 31 Year
  Weight: 70 kg

DRUGS (3)
  1. TRESIBA [Suspect]
     Active Substance: INSULIN DEGLUDEC
     Indication: DIABETES MELLITUS
     Dosage: 20 IU, QD
     Route: 065
  2. TRESIBA [Suspect]
     Active Substance: INSULIN DEGLUDEC
     Dosage: 15 IU, QD
     Route: 065
  3. FIASP [Suspect]
     Active Substance: INSULIN ASPART
     Indication: DIABETES MELLITUS
     Dosage: BEFORE MEALS(IF BLOOD GLUCOSE } 120 MG/DL. IF GREATER THAN 200 MG/DL, REPEAT BLOOD GLUCOSE AFTER 2 H
     Route: 065

REACTIONS (3)
  - Hyperglycaemia [Unknown]
  - Blood creatinine increased [Unknown]
  - Hypoglycaemia [Unknown]
